FAERS Safety Report 10349830 (Version 3)
Quarter: 2015Q1

REPORT INFORMATION
  Report Type: Spontaneous
  Country: US (occurrence: US)
  Receive Date: 20140730
  Receipt Date: 20150305
  Transmission Date: 20150720
  Serious: Yes (Hospitalization, Disabling, Other)
  Sender: FDA-Public Use
  Company Number: US-009507513-2010SP006033

PATIENT
  Sex: Female
  Weight: 72.58 kg

DRUGS (2)
  1. NUVARING [Suspect]
     Active Substance: ETHINYL ESTRADIOL\ETONOGESTREL
     Dosage: UNK
     Route: 067
     Dates: start: 20030312
  2. NUVARING [Suspect]
     Active Substance: ETHINYL ESTRADIOL\ETONOGESTREL
     Indication: CONTRACEPTION
     Dates: start: 200409, end: 20060307

REACTIONS (12)
  - Retinal artery occlusion [Recovered/Resolved with Sequelae]
  - Peripheral vascular disorder [Unknown]
  - Hypertension [Unknown]
  - Retinal vein occlusion [Recovered/Resolved]
  - Hypertension [Unknown]
  - Pulmonary embolism [Unknown]
  - Menorrhagia [Unknown]
  - Migraine [Unknown]
  - Blindness unilateral [Not Recovered/Not Resolved]
  - Visual field defect [Recovered/Resolved]
  - Retinal haemorrhage [Recovered/Resolved with Sequelae]
  - Thrombosis [Unknown]

NARRATIVE: CASE EVENT DATE: 2006
